FAERS Safety Report 7382490-8 (Version None)
Quarter: 2011Q1

REPORT INFORMATION
  Report Type: 
  Country: None (occurrence: None)
  Receive Date: 20110329
  Receipt Date: 20110301
  Transmission Date: 20110831
  Serious: Yes (Other)
  Sender: FDA-Public Use
  Company Number: US-BAYER-201032445NA

PATIENT
  Sex: Female
  Weight: 68.481 kg

DRUGS (6)
  1. CLARITIN [Concomitant]
     Indication: HYPERSENSITIVITY
     Dosage: UNK
     Dates: end: 20090804
  2. UNCODEABLE ^UNCLASSIFIABLE^ [Concomitant]
  3. PREDNISONE [Concomitant]
     Dosage: UNK
     Dates: end: 20090804
  4. HYDROXYZINE [Concomitant]
     Indication: ANXIETY
  5. AZITHROMYCIN [Concomitant]
  6. YAZ [Suspect]
     Indication: POLYCYSTIC OVARIES
     Dosage: UNK
     Route: 048
     Dates: start: 20090201, end: 20090801

REACTIONS (4)
  - CHOLELITHIASIS [None]
  - ABDOMINAL PAIN [None]
  - GALLBLADDER DISORDER [None]
  - CHOLECYSTITIS CHRONIC [None]
